FAERS Safety Report 24164335 (Version 2)
Quarter: 2024Q4

REPORT INFORMATION
  Report Type: Spontaneous
  Country: US (occurrence: US)
  Receive Date: 20240801
  Receipt Date: 20241001
  Transmission Date: 20250115
  Serious: Yes (Other)
  Sender: BRISTOL MYERS SQUIBB
  Company Number: US-BRISTOL-MYERS SQUIBB COMPANY-2024-120869

PATIENT
  Age: 77 Year
  Sex: Male

DRUGS (9)
  1. REVLIMID [Suspect]
     Active Substance: LENALIDOMIDE
     Indication: Plasma cell myeloma
     Dosage: FREQUENCY: 1 CAPSULE PO (ORAL) QD (ONCE DAILY) X3 WEEKS ON, 1 WEEK OFF,
     Route: 048
     Dates: start: 20220324
  2. ELIQUIS [Concomitant]
     Active Substance: APIXABAN
  3. ALFUZOSIN [Concomitant]
     Active Substance: ALFUZOSIN
     Dosage: ER
  4. DEXAMETHASONE [Concomitant]
     Active Substance: DEXAMETHASONE
  5. DUTASTERIDE [Concomitant]
     Active Substance: DUTASTERIDE
  6. ESCITALOPRAM [Concomitant]
     Active Substance: ESCITALOPRAM OXALATE
  7. LISINOPRIL [Concomitant]
     Active Substance: LISINOPRIL
  8. SIMVASTATIN [Concomitant]
     Active Substance: SIMVASTATIN
  9. VELCADE [Concomitant]
     Active Substance: BORTEZOMIB
     Dosage: 1 VIAL

REACTIONS (1)
  - Clostridium difficile infection [Unknown]

NARRATIVE: CASE EVENT DATE: 20240711
